FAERS Safety Report 16119770 (Version 1)
Quarter: 2019Q1

REPORT INFORMATION
  Report Type: Spontaneous
  Country: US (occurrence: US)
  Receive Date: 20190326
  Receipt Date: 20190326
  Transmission Date: 20190418
  Serious: Yes (Hospitalization, Other)
  Sender: FDA-Public Use
  Company Number: US-PFIZER INC-2018340158

PATIENT
  Age: 54 Year
  Sex: Male

DRUGS (2)
  1. IBRANCE [Suspect]
     Active Substance: PALBOCICLIB
     Indication: SOFT TISSUE SARCOMA
     Dosage: 125 MG, CYCLIC (1 CAPSULE BY MOUTH EVERY DAY ON DAYS 1 THROUGH 21 OF A 28-DAY TREATMENT CYCLE)
     Route: 048
     Dates: start: 201807
  2. VENTOLIN [Suspect]
     Active Substance: ALBUTEROL SULFATE

REACTIONS (5)
  - Cardiac arrest [Unknown]
  - Gastrointestinal infection [Unknown]
  - Constipation [Unknown]
  - Product use in unapproved indication [Unknown]
  - Discoloured vomit [Unknown]

NARRATIVE: CASE EVENT DATE: 201807
